FAERS Safety Report 6323155-0 (Version None)
Quarter: 2009Q3

REPORT INFORMATION
  Report Type: 
  Country: None (occurrence: None)
  Receive Date: 20090820
  Receipt Date: 20090803
  Transmission Date: 20100115
  Serious: Yes (Hospitalization)
  Sender: FDA-Public Use
  Company Number: 09AE002

PATIENT
  Sex: Female

DRUGS (1)
  1. MAGNESIUM SALICYLATE 580MG [Suspect]
     Indication: BACK DISORDER
     Dosage: 2 TABS (3TIMES), MOUTH
     Dates: start: 20090119, end: 20090120

REACTIONS (2)
  - ABDOMINAL PAIN [None]
  - HAEMATEMESIS [None]
